FAERS Safety Report 13332714 (Version 1)
Quarter: 2017Q1

REPORT INFORMATION
  Report Type: Spontaneous
  Country: DE (occurrence: DE)
  Receive Date: 20170313
  Receipt Date: 20170313
  Transmission Date: 20170428
  Serious: Yes (Other)
  Sender: FDA-Public Use
  Company Number: DE-TEVA-745394GER

PATIENT
  Age: 56 Year
  Sex: Male

DRUGS (3)
  1. DIAZEPAM-RATIOPHARM 10 MG TABLETTEN [Suspect]
     Active Substance: DIAZEPAM
     Indication: ANXIETY
     Dosage: 20 MILLIGRAM DAILY;
     Route: 048
     Dates: start: 2016, end: 201701
  2. DIAZEPAM-RATIOPHARM 10 MG TABLETTEN [Suspect]
     Active Substance: DIAZEPAM
     Dosage: 60 MILLIGRAM DAILY;
     Route: 048
     Dates: start: 201701, end: 20170227
  3. RAMILICH COMP 5 MG/25 MG TABLETTEN [Concomitant]
     Dosage: 1 DOSAGE FORMS DAILY; 1 DF CONTAINS 5 MG RAMIPRIL PLUS 25 MG HYDROCHLOROTHIAZIDE
     Route: 048

REACTIONS (7)
  - Drug dependence [Unknown]
  - Dizziness [Unknown]
  - Hepatic cirrhosis [Unknown]
  - Anxiety [Unknown]
  - Disorientation [Unknown]
  - Drug ineffective [Unknown]
  - Intentional product use issue [Unknown]

NARRATIVE: CASE EVENT DATE: 201701
